FAERS Safety Report 18487712 (Version 1)
Quarter: 2020Q4

REPORT INFORMATION
  Report Type: Spontaneous
  Country: US (occurrence: US)
  Receive Date: 20201110
  Receipt Date: 20201110
  Transmission Date: 20210114
  Serious: Yes (Other)
  Sender: FDA-Public Use
  Company Number: US-GE HEALTHCARE LIFE SCIENCES-2020CSU005567

PATIENT
  Age: 72 Year
  Sex: Male

DRUGS (2)
  1. OMNIPAQUE [Suspect]
     Active Substance: IOHEXOL
     Indication: PRODUCT USED FOR UNKNOWN INDICATION
  2. OMNIPAQUE [Suspect]
     Active Substance: IOHEXOL
     Indication: ANGIOGRAM
     Dosage: AT RIGHT ANTECUBITAL, SINGLE
     Route: 042
     Dates: start: 20200928, end: 20200928

REACTIONS (6)
  - Vision blurred [Unknown]
  - Pain [Unknown]
  - Dysgeusia [Unknown]
  - Transient ischaemic attack [Unknown]
  - Injection site extravasation [Unknown]
  - Seizure [Unknown]

NARRATIVE: CASE EVENT DATE: 20200928
